FAERS Safety Report 14094357 (Version 1)
Quarter: 2017Q4

REPORT INFORMATION
  Report Type: Report from Study
  Country: RS (occurrence: RS)
  Receive Date: 20171016
  Receipt Date: 20171016
  Transmission Date: 20180321
  Serious: Yes (Other)
  Sender: FDA-Public Use
  Company Number: RS-ROCHE-GNE276793

PATIENT
  Age: 65 Year
  Sex: Male

DRUGS (9)
  1. CLOPIDOGREL [Suspect]
     Active Substance: CLOPIDOGREL BISULFATE
     Indication: ANTIPLATELET THERAPY
     Dosage: UNK MG, UNK
     Route: 065
  2. CLOPIDOGREL [Suspect]
     Active Substance: CLOPIDOGREL BISULFATE
     Dosage: 75 MG, QD
     Route: 065
  3. ACETYLSALICYLIC ACID [Suspect]
     Active Substance: ASPIRIN
     Dosage: 100 MG, QD
     Route: 065
  4. ENOXAPARIN [Suspect]
     Active Substance: ENOXAPARIN
     Dosage: 1 MG/KG, UNK
     Route: 058
  5. ALTEPLASE. [Suspect]
     Active Substance: ALTEPLASE
     Dosage: 50 MG, UNK
     Route: 042
  6. ALTEPLASE. [Suspect]
     Active Substance: ALTEPLASE
     Indication: ACUTE MYOCARDIAL INFARCTION
     Dosage: 15 MG, UNK
     Route: 040
  7. ALTEPLASE. [Suspect]
     Active Substance: ALTEPLASE
     Dosage: 35 MG, UNK
     Route: 042
  8. ENOXAPARIN [Suspect]
     Active Substance: ENOXAPARIN
     Indication: ANTICOAGULANT THERAPY
     Dosage: 30 MG, UNK
     Route: 040
  9. ACETYLSALICYLIC ACID [Suspect]
     Active Substance: ASPIRIN
     Indication: ANTIPLATELET THERAPY
     Dosage: UNK MG, UNK
     Route: 065

REACTIONS (2)
  - Melaena [Unknown]
  - Gastrointestinal haemorrhage [Unknown]
